FAERS Safety Report 11331373 (Version 1)
Quarter: 2015Q3

REPORT INFORMATION
  Report Type: Spontaneous
  Country: US (occurrence: US)
  Receive Date: 20150803
  Receipt Date: 20150803
  Transmission Date: 20151125
  Serious: Yes (Hospitalization, Other)
  Sender: FDA-Public Use
  Company Number: US-PFIZER INC-2015253230

PATIENT
  Age: 59 Year
  Sex: Male

DRUGS (2)
  1. MAPROTILINE [Suspect]
     Active Substance: MAPROTILINE
     Indication: DEPRESSION
     Dosage: 150 MG, 1X/DAY
     Route: 048
  2. THIOTHIXENE HCL [Suspect]
     Active Substance: THIOTHIXENE HYDROCHLORIDE
     Indication: DEPRESSION
     Dosage: 5 MG, 1X/DAY
     Route: 048

REACTIONS (2)
  - Stupor [Recovered/Resolved]
  - Electroencephalogram abnormal [Recovered/Resolved]
